FAERS Safety Report 16378008 (Version 2)
Quarter: 2019Q3

REPORT INFORMATION
  Report Type: Spontaneous
  Country: US (occurrence: US)
  Receive Date: 20190531
  Receipt Date: 20190930
  Transmission Date: 20191004
  Serious: Yes (Hospitalization, Other)
  Sender: FDA-Public Use
  Company Number: US-PFIZER INC-2018394013

PATIENT
  Age: 70 Year
  Sex: Female
  Weight: 170 kg

DRUGS (2)
  1. LYRICA [Suspect]
     Active Substance: PREGABALIN
     Indication: MULTIPLE SCLEROSIS
     Dosage: 450 MG, DAILY (1 TABLET IN THE MORNING AND 2 TABLETS AT NIGHT)(TAKE 3 CAPSULES PER DAY AS DIRECTED)
     Dates: start: 201809
  2. LYRICA [Suspect]
     Active Substance: PREGABALIN
     Indication: PAIN IN EXTREMITY
     Dosage: 150 MG, 3X/DAY

REACTIONS (4)
  - Pneumonia [Unknown]
  - Aspiration [Unknown]
  - Feeling abnormal [Unknown]
  - Malaise [Unknown]
